FAERS Safety Report 12205548 (Version 10)
Quarter: 2017Q4

REPORT INFORMATION
  Report Type: Report from Study
  Country: CO (occurrence: CO)
  Receive Date: 20160323
  Receipt Date: 20171204
  Transmission Date: 20180320
  Serious: Yes (Life-Threatening, Hospitalization, Other)
  Sender: FDA-Public Use
  Company Number: PHHY2015CO044004

PATIENT
  Age: 34 Year
  Sex: Female
  Weight: 49 kg

DRUGS (14)
  1. PREGABALIN. [Concomitant]
     Active Substance: PREGABALIN
     Indication: PRODUCT USED FOR UNKNOWN INDICATION
     Route: 065
  2. AMITRIPTYLLINE [Concomitant]
     Active Substance: AMITRIPTYLINE
     Indication: PRODUCT USED FOR UNKNOWN INDICATION
     Route: 065
  3. PEGFILGRASTIM [Concomitant]
     Active Substance: PEGFILGRASTIM
     Indication: PRODUCT USED FOR UNKNOWN INDICATION
     Route: 065
  4. HYDROCODONE [Concomitant]
     Active Substance: HYDROCODONE
     Indication: PRODUCT USED FOR UNKNOWN INDICATION
     Route: 065
  5. EXJADE [Suspect]
     Active Substance: DEFERASIROX
     Indication: APLASTIC ANAEMIA
     Dosage: 10 MG/KG, QD (250 MG BID)
     Route: 048
     Dates: start: 20080605, end: 20170831
  6. EXJADE [Suspect]
     Active Substance: DEFERASIROX
     Indication: IRON OVERLOAD
     Dosage: 500 MG, BID
     Route: 048
     Dates: end: 201512
  7. SOLIRIS [Concomitant]
     Active Substance: ECULIZUMAB
     Indication: CHEMOTHERAPY
     Dosage: 300 MG, QW2
     Route: 065
  8. SOLIRIS [Concomitant]
     Active Substance: ECULIZUMAB
     Dosage: 900 MG, QW2 (EVERY 14 DAYS)
     Route: 042
  9. ECULIZUMAB [Concomitant]
     Active Substance: ECULIZUMAB
     Indication: PRODUCT USED FOR UNKNOWN INDICATION
     Route: 065
  10. TRAMADOL. [Concomitant]
     Active Substance: TRAMADOL
     Indication: PRODUCT USED FOR UNKNOWN INDICATION
     Route: 065
  11. COMPLEX B [Concomitant]
     Active Substance: CALCIUM PANTOTHENATE\CYANOCOBALAMIN\NIACINAMIDE\PYRIDOXINE HYDROCHLORIDE\RIBOFLAVIN\THIAMINE MONONITRATE
     Indication: PRODUCT USED FOR UNKNOWN INDICATION
     Route: 065
  12. ACETAMINOPHEN. [Concomitant]
     Active Substance: ACETAMINOPHEN
     Indication: PRODUCT USED FOR UNKNOWN INDICATION
     Route: 065
  13. OMEPRAZOLE. [Concomitant]
     Active Substance: OMEPRAZOLE
     Indication: PRODUCT USED FOR UNKNOWN INDICATION
     Route: 065
  14. AMLODIPINE [Concomitant]
     Active Substance: AMLODIPINE BESYLATE
     Indication: PRODUCT USED FOR UNKNOWN INDICATION
     Route: 065

REACTIONS (37)
  - Blood test abnormal [Unknown]
  - Pain [Unknown]
  - Blood iron decreased [Unknown]
  - Urinary tract infection [Unknown]
  - Mouth injury [Unknown]
  - Eosinophil count abnormal [Unknown]
  - Blood iron increased [Unknown]
  - Gamma-glutamyltransferase abnormal [Unknown]
  - Lymphocyte count abnormal [Unknown]
  - Factor XI deficiency [Unknown]
  - Blood bilirubin abnormal [Unknown]
  - Headache [Unknown]
  - Serum ferritin increased [Unknown]
  - Infection [Unknown]
  - Cholelithiasis [Unknown]
  - Myalgia [Unknown]
  - Oral infection [Unknown]
  - Insomnia [Unknown]
  - Platelet count abnormal [Unknown]
  - Muscle spasms [Unknown]
  - Blood lactate dehydrogenase abnormal [Unknown]
  - Red blood cell count abnormal [Unknown]
  - Haematocrit abnormal [Unknown]
  - Haemoglobin decreased [Unknown]
  - Aspartate aminotransferase abnormal [Unknown]
  - White blood cell count decreased [Unknown]
  - Alanine aminotransferase abnormal [Unknown]
  - General physical health deterioration [Unknown]
  - CD8 lymphocytes abnormal [Unknown]
  - Alopecia [Unknown]
  - Aplastic anaemia [Unknown]
  - Haemorrhagic disorder [Unknown]
  - Conjunctivitis [Unknown]
  - Epilepsy [Not Recovered/Not Resolved]
  - Cholecystitis [Unknown]
  - Laboratory test abnormal [Unknown]
  - Malaise [Unknown]

NARRATIVE: CASE EVENT DATE: 201601
